FAERS Safety Report 9181091 (Version 3)
Quarter: 2015Q2

REPORT INFORMATION
  Report Type: Spontaneous
  Country: US (occurrence: US)
  Receive Date: 20130322
  Receipt Date: 20150521
  Transmission Date: 20150821
  Serious: Yes (Other)
  Sender: FDA-Public Use
  Company Number: US-BAYER-2013-034981

PATIENT
  Age: 24 Year
  Sex: Female
  Weight: 63 kg

DRUGS (2)
  1. MIRENA [Suspect]
     Active Substance: LEVONORGESTREL
     Indication: CONTRACEPTION
     Dosage: 20 MCG/24HR, CONT
     Route: 015
     Dates: start: 201104, end: 20111207
  2. ORTHO EVRA [Concomitant]
     Active Substance: ETHINYL ESTRADIOL\NORELGESTROMIN

REACTIONS (10)
  - Device dislocation [Not Recovered/Not Resolved]
  - Scar [None]
  - Abdominal pain lower [Not Recovered/Not Resolved]
  - Dyspepsia [None]
  - Depression [None]
  - Procedural pain [None]
  - Genital haemorrhage [None]
  - Nausea [None]
  - Medical device complication [None]
  - Device issue [None]

NARRATIVE: CASE EVENT DATE: 201104
